FAERS Safety Report 7374786-0 (Version None)
Quarter: 2011Q1

REPORT INFORMATION
  Report Type: 
  Country: None (occurrence: None)
  Receive Date: 20110325
  Receipt Date: 20101108
  Transmission Date: 20110831
  Serious: No
  Sender: FDA-Public Use
  Company Number: US-MYLANLABS-2010S1020657

PATIENT
  Age: 71 Year
  Sex: Female

DRUGS (3)
  1. OXYCODONE [Concomitant]
  2. INSULIN [Concomitant]
  3. FENTANYL-100 [Suspect]
     Indication: PAIN
     Dosage: Q72H
     Route: 062
     Dates: start: 20100701

REACTIONS (2)
  - FEELING HOT [None]
  - DYSPNOEA [None]
